FAERS Safety Report 7391343-0 (Version None)
Quarter: 2011Q2

REPORT INFORMATION
  Report Type: 
  Country: None (occurrence: None)
  Receive Date: 20110404
  Receipt Date: 20110324
  Transmission Date: 20111010
  Serious: Yes (Other)
  Sender: FDA-Public Use
  Company Number: JP-BRISTOL-MYERS SQUIBB COMPANY-15552599

PATIENT
  Age: 78 Year
  Sex: Female
  Weight: 35 kg

DRUGS (15)
  1. GENTACIN [Concomitant]
     Dosage: INJECTION
     Dates: start: 20101102, end: 20101112
  2. HALCION [Concomitant]
     Dosage: TABLET
     Dates: end: 20101118
  3. ZYVOX [Concomitant]
     Dosage: INJECTION,TAB 600MG ON 28OCT10-29OCT10
     Dates: start: 20101022, end: 20101024
  4. ASCORBIC ACID [Concomitant]
     Dosage: INJECTION,THERAPY ON 08NOV10
     Dates: start: 20101104, end: 20110315
  5. URSO 250 [Concomitant]
     Dosage: TABLET
     Dates: end: 20101118
  6. VESICARE [Concomitant]
     Dosage: TABLET
     Dates: end: 20101118
  7. DIOVAN [Concomitant]
     Dosage: TABLET
  8. ABILIFY [Suspect]
     Indication: HALLUCINATION
     Dosage: 27OCT10-01NOV10(6D)3MG/D 02NOV10-09NOV10(8D)6MG/D(DOSE INCREASED)
     Route: 048
     Dates: start: 20101027, end: 20101109
  9. VITAMEDIN [Concomitant]
     Dosage: INJECTION
     Dates: start: 20101104, end: 20101108
  10. BENZALIN [Concomitant]
     Dosage: TABLET
     Dates: end: 20101118
  11. VANCOMYCIN [Concomitant]
     Dosage: INJECTION
     Dates: start: 20101103, end: 20101124
  12. GASLON N [Concomitant]
     Dosage: ORODISPERSIBLE TABLET
     Dates: end: 20101118
  13. TAKA-DIASTASE [Concomitant]
     Dosage: POWDER
     Route: 048
     Dates: end: 20101118
  14. HABEKACIN [Concomitant]
     Dosage: INJECTION
     Dates: start: 20101029, end: 20101103
  15. FOSAMAC [Concomitant]
     Dosage: TABLET

REACTIONS (3)
  - BLOOD SODIUM DECREASED [None]
  - BLOOD CHLORIDE DECREASED [None]
  - BLOOD POTASSIUM DECREASED [None]
